FAERS Safety Report 17901451 (Version 1)
Quarter: 2020Q2

REPORT INFORMATION
  Report Type: Spontaneous
  Country: US (occurrence: US)
  Receive Date: 20200616
  Receipt Date: 20200616
  Transmission Date: 20200714
  Serious: No
  Sender: FDA-Public Use
  Company Number: US-ALVOGEN-2019-ALVOGEN-102021

PATIENT

DRUGS (9)
  1. LISINOPRIL. [Suspect]
     Active Substance: LISINOPRIL
     Indication: BLOOD PRESSURE MANAGEMENT
  2. BRILINTA [Suspect]
     Active Substance: TICAGRELOR
     Indication: MYOCARDIAL INFARCTION
     Dates: start: 201901
  3. ATORVASTATIN [Concomitant]
     Active Substance: ATORVASTATIN
     Indication: BLOOD CHOLESTEROL ABNORMAL
  4. AMALODIPINE [Concomitant]
     Indication: BLOOD CHOLESTEROL ABNORMAL
  5. ATORVASTATIN [Concomitant]
     Active Substance: ATORVASTATIN
     Indication: BLOOD PRESSURE MANAGEMENT
  6. ASPIRIN. [Concomitant]
     Active Substance: ASPIRIN
     Indication: PRODUCT USED FOR UNKNOWN INDICATION
  7. AMALODIPINE [Concomitant]
     Indication: BLOOD PRESSURE MANAGEMENT
  8. METFORMIN [Concomitant]
     Active Substance: METFORMIN HYDROCHLORIDE
     Indication: GLUCOSE TOLERANCE IMPAIRED
  9. LISINOPRIL. [Suspect]
     Active Substance: LISINOPRIL
     Indication: BLOOD CHOLESTEROL

REACTIONS (2)
  - Off label use [Unknown]
  - Product dose omission [Unknown]

NARRATIVE: CASE EVENT DATE: 20191111
